FAERS Safety Report 8355784-7 (Version None)
Quarter: 2012Q2

REPORT INFORMATION
  Report Type: 
  Country: None (occurrence: None)
  Receive Date: 20120514
  Receipt Date: 20120509
  Transmission Date: 20120825
  Serious: No
  Sender: FDA-Public Use
  Company Number: US-PFIZER INC-2012104823

PATIENT
  Sex: Male
  Weight: 48.526 kg

DRUGS (4)
  1. SUTENT [Suspect]
     Indication: METASTATIC RENAL CELL CARCINOMA
     Dosage: 50 MG, CYCLE OF 42 DAYS
     Dates: start: 20120424
  2. OXYCODONE HYDROCHLORIDE [Suspect]
     Indication: PAIN
     Dosage: 5 MG, EVERY SIX HOURS
     Dates: start: 20120404
  3. FENTANYL [Suspect]
     Indication: MUSCULOSKELETAL PAIN
     Dosage: 50 UG, PER 72 HOURS
     Dates: start: 20120424
  4. HYDROCODONE BITARTRATE [Suspect]
     Indication: MUSCULOSKELETAL PAIN
     Dosage: UNK

REACTIONS (6)
  - BLISTER [None]
  - TEMPERATURE INTOLERANCE [None]
  - NAUSEA [None]
  - MUSCULOSKELETAL PAIN [None]
  - BLOOD IRON DECREASED [None]
  - STOMATITIS [None]
